FAERS Safety Report 4329485-6 (Version None)
Quarter: 2004Q2

REPORT INFORMATION
  Report Type: 
  Country: None (occurrence: None)
  Receive Date: 20040401
  Receipt Date: 20040330
  Transmission Date: 20050107
  Serious: Yes (Life-Threatening)
  Sender: FDA-Public Use
  Company Number: IT-MERCK-0403ITA00044

PATIENT
  Age: 70 Year
  Sex: Female

DRUGS (3)
  1. MODURETIC 5-50 [Suspect]
     Route: 048
     Dates: start: 20040304, end: 20040304
  2. FOLIC ACID [Concomitant]
     Indication: RHEUMATOID ARTHRITIS
     Route: 065
  3. METHOTREXATE [Concomitant]
     Indication: RHEUMATOID ARTHRITIS
     Route: 065

REACTIONS (1)
  - ANAPHYLACTIC SHOCK [None]
